FAERS Safety Report 9106959 (Version 1)
Quarter: 2013Q1

REPORT INFORMATION
  Report Type: Spontaneous
  Country: US (occurrence: US)
  Receive Date: 20130221
  Receipt Date: 20130221
  Transmission Date: 20140127
  Serious: No
  Sender: FDA-Public Use
  Company Number: US-009507513-1302USA003351

PATIENT
  Sex: 0

DRUGS (1)
  1. AZASITE [Suspect]
     Dosage: 1 DF, QD
     Route: 047
     Dates: start: 20130128

REACTIONS (2)
  - Drug prescribing error [Unknown]
  - Product quality issue [Unknown]
